FAERS Safety Report 7585643-9 (Version None)
Quarter: 2011Q2

REPORT INFORMATION
  Report Type: 
  Country: None (occurrence: None)
  Receive Date: 20110628
  Receipt Date: 20110628
  Transmission Date: 20111010
  Serious: Yes (Other)
  Sender: FDA-Public Use
  Company Number: None

PATIENT
  Age: 58 Year
  Sex: Male
  Weight: 83.9154 kg

DRUGS (1)
  1. OMEPRAZOLE [Suspect]
     Dosage: 20MG 2 X DAY OVER 5 YEARS

REACTIONS (4)
  - PRODUCT CONTAMINATION [None]
  - MUSCLE SPASMS [None]
  - DIARRHOEA [None]
  - OEDEMA PERIPHERAL [None]
